FAERS Safety Report 10300086 (Version 1)
Quarter: 2014Q3

REPORT INFORMATION
  Report Type: Spontaneous
  Country: JP (occurrence: JP)
  Receive Date: 20140711
  Receipt Date: 20140711
  Transmission Date: 20150326
  Serious: Yes (Death, Hospitalization)
  Sender: FDA-Public Use
  Company Number: PHHY2010JP095545

PATIENT
  Age: 39 Year
  Sex: Male

DRUGS (4)
  1. SANDOSTATIN [Suspect]
     Active Substance: OCTREOTIDE ACETATE
     Indication: RECTAL CANCER
     Dosage: 300 UG, DAILY
     Route: 058
  2. SANDOSTATIN [Suspect]
     Active Substance: OCTREOTIDE ACETATE
     Indication: PANCREATIC CARCINOMA
  3. SANDOSTATIN [Suspect]
     Active Substance: OCTREOTIDE ACETATE
     Indication: METASTASES TO LIVER
     Dosage: 67 UG
     Route: 058
  4. SANDOSTATIN [Suspect]
     Active Substance: OCTREOTIDE ACETATE
     Indication: METASTASES TO LUNG
     Dosage: 167 UG
     Route: 058

REACTIONS (4)
  - Nausea [Recovered/Resolved]
  - Ascites [Fatal]
  - Abdominal distension [Recovered/Resolved]
  - Abdominal pain [Fatal]
